FAERS Safety Report 14608862 (Version 1)
Quarter: 2018Q1

REPORT INFORMATION
  Report Type: Spontaneous
  Country: US (occurrence: US)
  Receive Date: 20180307
  Receipt Date: 20180307
  Transmission Date: 20180509
  Serious: No
  Sender: FDA-Public Use
  Company Number: US-ABBVIE-17K-163-1994579-00

PATIENT
  Age: 10 Year
  Sex: Male

DRUGS (1)
  1. ANDROGEL [Suspect]
     Active Substance: TESTOSTERONE
     Indication: PRODUCT USED FOR UNKNOWN INDICATION
     Route: 065

REACTIONS (5)
  - Reproductive tract disorder [Unknown]
  - Aggression [Unknown]
  - Virilism [Unknown]
  - Accidental exposure to product [Unknown]
  - Precocious puberty [Unknown]

NARRATIVE: CASE EVENT DATE: 201604
